FAERS Safety Report 6412871-8 (Version None)
Quarter: 2009Q4

REPORT INFORMATION
  Report Type: 
  Country: None (occurrence: None)
  Receive Date: 20091023
  Receipt Date: 20091012
  Transmission Date: 20100525
  Serious: Yes (Hospitalization)
  Sender: FDA-Public Use
  Company Number: PHHY2009TW43914

PATIENT
  Age: 66 Year
  Sex: Female

DRUGS (1)
  1. ACLASTA [Suspect]
     Indication: OSTEOPOROSIS POSTMENOPAUSAL
     Dosage: 5 MG/100CC (ONCE A YEAR)
     Route: 042
     Dates: start: 20091008

REACTIONS (4)
  - CARDIAC DISORDER [None]
  - HYPERTENSION [None]
  - PAIN [None]
  - PYREXIA [None]
